FAERS Safety Report 18137465 (Version 5)
Quarter: 2020Q4

REPORT INFORMATION
  Report Type: Report from Study
  Country: GB (occurrence: GB)
  Receive Date: 20200811
  Receipt Date: 20201013
  Transmission Date: 20210113
  Serious: Yes (Death, Hospitalization)
  Sender: FDA-Public Use
  Company Number: GB-CELGENEUS-GBR-20200801093

PATIENT
  Age: 76 Year
  Sex: Male

DRUGS (24)
  1. LENALIDOMIDE [Suspect]
     Active Substance: LENALIDOMIDE
     Indication: DIFFUSE LARGE B-CELL LYMPHOMA RECURRENT
     Dosage: 10, 15 OR 20 MILLIGRAM
     Route: 048
     Dates: start: 20200103, end: 20200206
  2. LENALIDOMIDE [Suspect]
     Active Substance: LENALIDOMIDE
     Dosage: 20 MILLIGRAM
     Route: 048
     Dates: start: 20200206
  3. POLATUZUMAB VEDOTIN. [Suspect]
     Active Substance: POLATUZUMAB VEDOTIN
     Indication: DIFFUSE LARGE B-CELL LYMPHOMA RECURRENT
     Dosage: 1.8 MICROGRAM/KILOGRAM
     Route: 041
     Dates: start: 20200103, end: 20200522
  4. EKLIRA GENUAIR [Concomitant]
     Active Substance: ACLIDINIUM BROMIDE
     Indication: CHRONIC OBSTRUCTIVE PULMONARY DISEASE
     Route: 065
     Dates: start: 200003
  5. SYMBICORT [Concomitant]
     Active Substance: BUDESONIDE\FORMOTEROL FUMARATE DIHYDRATE
     Indication: CHRONIC OBSTRUCTIVE PULMONARY DISEASE
     Route: 065
     Dates: start: 200012
  6. CETRABEN [LIGHT LIQUID PARAFFIN\WHITE SOFT PARAFFIN] [Concomitant]
     Active Substance: MINERAL OIL\PETROLATUM
     Indication: RASH MACULO-PAPULAR
     Route: 065
     Dates: start: 20200113
  7. LANSOPRAZOLE. [Concomitant]
     Active Substance: LANSOPRAZOLE
     Indication: PROPHYLAXIS
     Route: 065
     Dates: start: 20200730, end: 20200812
  8. DOCUSATE SODIUM. [Concomitant]
     Active Substance: DOCUSATE SODIUM
     Indication: CONSTIPATION
     Route: 065
     Dates: start: 20200807, end: 20200812
  9. SALBUTAMOL [Concomitant]
     Active Substance: ALBUTEROL
     Indication: CHRONIC OBSTRUCTIVE PULMONARY DISEASE
     Route: 065
     Dates: start: 200003
  10. OMEPRAZOLE. [Concomitant]
     Active Substance: OMEPRAZOLE
     Indication: GASTROOESOPHAGEAL REFLUX DISEASE
     Route: 065
     Dates: start: 201312
  11. PIRITON [Concomitant]
     Active Substance: CHLORPHENIRAMINE MALEATE
     Indication: RASH MACULO-PAPULAR
     Route: 065
     Dates: start: 20200205
  12. GAVISCON [Concomitant]
     Active Substance: ALUMINUM HYDROXIDE\MAGNESIUM CARBONATE
     Indication: GASTROOESOPHAGEAL REFLUX DISEASE
     Route: 065
     Dates: start: 2003
  13. RITUXIMAB. [Suspect]
     Active Substance: RITUXIMAB
     Indication: DIFFUSE LARGE B-CELL LYMPHOMA RECURRENT
     Dosage: 375 MICROGRAM/SQ. METER
     Route: 041
     Dates: start: 20200103, end: 20200716
  14. RITUXIMAB. [Suspect]
     Active Substance: RITUXIMAB
     Dosage: 710 MILLIGRAM
     Route: 041
     Dates: start: 20200716, end: 2020
  15. POLATUZUMAB VEDOTIN. [Suspect]
     Active Substance: POLATUZUMAB VEDOTIN
     Dosage: 140 MILLIGRAM
     Route: 041
     Dates: start: 20200522
  16. UNIPHYLLINE [Concomitant]
     Active Substance: THEOPHYLLINE
     Indication: CHRONIC OBSTRUCTIVE PULMONARY DISEASE
     Route: 065
     Dates: start: 200012
  17. EVOLVE HYPROMELLOSE [Concomitant]
     Indication: DRY EYE
     Route: 065
     Dates: start: 201812
  18. SODIUM ALGINATE [Concomitant]
     Active Substance: SODIUM ALGINATE
     Indication: GASTROOESOPHAGEAL REFLUX DISEASE
     Route: 065
  19. ACICLOVIR [Concomitant]
     Active Substance: ACYCLOVIR
     Indication: PROPHYLAXIS
     Route: 065
     Dates: start: 20200117
  20. PENTAMIDINE [Concomitant]
     Active Substance: PENTAMIDINE
     Indication: PRODUCT USED FOR UNKNOWN INDICATION
     Route: 065
     Dates: start: 20200117
  21. HYDROCORTISONE. [Concomitant]
     Active Substance: HYDROCORTISONE
     Indication: RASH MACULO-PAPULAR
     Route: 065
     Dates: start: 20200113
  22. RAMIPRIL. [Concomitant]
     Active Substance: RAMIPRIL
     Indication: HYPERTENSION
     Route: 065
     Dates: start: 201211
  23. ASPIRIN. [Concomitant]
     Active Substance: ASPIRIN
     Indication: PRODUCT USED FOR UNKNOWN INDICATION
     Route: 065
     Dates: start: 20200131
  24. ATOVAQUONE. [Concomitant]
     Active Substance: ATOVAQUONE
     Indication: ANTIFUNGAL PROPHYLAXIS
     Route: 065
     Dates: start: 20200730, end: 20200812

REACTIONS (1)
  - Brain stem stroke [Fatal]

NARRATIVE: CASE EVENT DATE: 20200728
